FAERS Safety Report 20351917 (Version 1)
Quarter: 2022Q1

REPORT INFORMATION
  Report Type: Spontaneous
  Country: US (occurrence: None)
  Receive Date: 20220118
  Receipt Date: 20220118
  Transmission Date: 20220424
  Serious: Yes (Life-Threatening)
  Sender: FDA-Public Use
  Company Number: None

PATIENT
  Age: 51 Year
  Sex: Male
  Weight: 104 kg

DRUGS (15)
  1. CRESEMBA [Suspect]
     Active Substance: ISAVUCONAZONIUM SULFATE
     Indication: Mucormycosis
     Dosage: FREQUENCY : EVERY 8 HOURS;?
     Route: 042
     Dates: start: 20211224, end: 20211228
  2. AMPHOTERICIN B [Concomitant]
     Active Substance: AMPHOTERICIN B
     Dates: start: 20211102, end: 20211227
  3. UNASYN [Concomitant]
     Active Substance: AMPICILLIN SODIUM\SULBACTAM SODIUM
     Dates: start: 20211108, end: 20211125
  4. MEROPENEM [Concomitant]
     Active Substance: MEROPENEM
     Dates: start: 20211125, end: 20211210
  5. METHADONE [Concomitant]
     Active Substance: METHADONE HYDROCHLORIDE
     Dates: start: 20211201, end: 20220118
  6. MINOCYCLINE [Concomitant]
     Active Substance: MINOCYCLINE HYDROCHLORIDE
     Dates: start: 20211125, end: 20211210
  7. POLYMYXIN B [Concomitant]
     Active Substance: POLYMYXIN B
     Dates: start: 20211125, end: 20220110
  8. ROCURONIUM [Concomitant]
     Active Substance: ROCURONIUM BROMIDE
  9. Midazolam IV [Concomitant]
  10. MIRTAZAPINE [Concomitant]
     Active Substance: MIRTAZAPINE
  11. OXYCODONE [Concomitant]
     Active Substance: OXYCODONE
  12. GABAPENTIN [Concomitant]
     Active Substance: GABAPENTIN
  13. MIDAZOLAM [Concomitant]
     Active Substance: MIDAZOLAM
  14. HYDROMORPHONE [Concomitant]
     Active Substance: HYDROMORPHONE
  15. KETAMINE [Concomitant]
     Active Substance: KETAMINE

REACTIONS (8)
  - Infusion related reaction [None]
  - Acute respiratory distress syndrome [None]
  - Encephalopathy [None]
  - Blood pH decreased [None]
  - Carbon dioxide increased [None]
  - Respiratory failure [None]
  - Blood pressure decreased [None]
  - Drug hypersensitivity [None]

NARRATIVE: CASE EVENT DATE: 20211228
